FAERS Safety Report 15158205 (Version 1)
Quarter: 2018Q3

REPORT INFORMATION
  Report Type: Spontaneous
  Country: GB (occurrence: GB)
  Receive Date: 20180718
  Receipt Date: 20180718
  Transmission Date: 20181010
  Serious: Yes (Other)
  Sender: FDA-Public Use
  Company Number: GB-TEVA-2018-GB-927484

PATIENT
  Age: 23 Year
  Sex: Male
  Weight: 58 kg

DRUGS (1)
  1. PHENOXYMETHYLPENICILLIN [Suspect]
     Active Substance: PENICILLIN V
     Route: 065
     Dates: start: 20180611

REACTIONS (1)
  - Rash macular [Unknown]

NARRATIVE: CASE EVENT DATE: 20180612
